FAERS Safety Report 11058582 (Version 1)
Quarter: 2015Q2

REPORT INFORMATION
  Report Type: Spontaneous
  Country: CH (occurrence: None)
  Receive Date: 20150421
  Receipt Date: 20150421
  Transmission Date: 20150821
  Serious: Yes (Hospitalization, Other)
  Sender: FDA-Public Use
  Company Number: 2015CVI00005

PATIENT
  Age: 59 Year
  Sex: Male

DRUGS (19)
  1. PHENYDAN [Suspect]
     Active Substance: PHENYTOIN
     Indication: PARTIAL SEIZURES
     Route: 042
     Dates: end: 20150306
  2. ZOFRAN (ONDANSETRON) [Concomitant]
  3. DISOPRIVAN (PROPOFOL) [Concomitant]
  4. EPHEDRIN (EPHEDRINE HYDROCHLORIDE) [Concomitant]
  5. ZINACEF (CEFUROXIME) INJECTION [Suspect]
     Active Substance: CEFUROXIME SODIUM
     Indication: ANTIBIOTIC PROPHYLAXIS
     Route: 041
     Dates: start: 20150115, end: 20150115
  6. PHENYDAN [Suspect]
     Active Substance: PHENYTOIN
     Indication: PARTIAL SEIZURES
     Route: 048
     Dates: start: 20150130, end: 20150306
  7. ULTIVA (REMIFENTANIL HYDROCHLORIDE) [Concomitant]
  8. RIVOTRIL [Concomitant]
     Active Substance: CLONAZEPAM
  9. FRAXIPARINE (NADROPARIN CALCIUM) [Concomitant]
     Active Substance: NADROPARIN CALCIUM
  10. ZINACEF (CEFUROXIME) INJECTION [Suspect]
     Active Substance: CEFUROXIME SODIUM
     Indication: POSTOPERATIVE CARE
     Route: 041
     Dates: start: 20150115, end: 20150115
  11. PANTOZOL (PANTOPRAZOLE) [Concomitant]
  12. NOVALGIN (ANALGIN) [Concomitant]
  13. MANNITOL. [Concomitant]
     Active Substance: MANNITOL
  14. PRIMPERAN (METOCLOPRAMIDE) [Concomitant]
  15. KEPPRA [Suspect]
     Active Substance: LEVETIRACETAM
     Indication: PARTIAL SEIZURES
     Route: 048
     Dates: start: 20150127, end: 20150306
  16. URBANYL TABLET (CLOBAZAM) [Concomitant]
  17. PERFALGAN INFUSIONSLOESUNG (PARACETAMOL) [Concomitant]
  18. FENTANYL. [Concomitant]
     Active Substance: FENTANYL
  19. ESMERON (ROCURONIUM BROMIDE) [Concomitant]

REACTIONS (8)
  - Oral candidiasis [None]
  - Pneumonia [None]
  - Lymphocyte morphology abnormal [None]
  - Drug reaction with eosinophilia and systemic symptoms [None]
  - Pyrexia [None]
  - Hepatitis [None]
  - Tachycardia [None]
  - Arthralgia [None]

NARRATIVE: CASE EVENT DATE: 20150225
